FAERS Safety Report 8976944 (Version 1)
Quarter: 2012Q4

REPORT INFORMATION
  Report Type: 
  Country: US (occurrence: US)
  Receive Date: 20121220
  Receipt Date: 20121220
  Transmission Date: 20130627
  Serious: Yes (Other)
  Sender: FDA-Public Use
  Company Number: US-BAYER-2012-132030

PATIENT
  Age: 19 Year
  Sex: Female

DRUGS (3)
  1. YASMIN [Suspect]
  2. PAPAVERINE [Concomitant]
  3. CARDIZEM [Concomitant]

REACTIONS (1)
  - Peripheral arterial occlusive disease [None]
